FAERS Safety Report 6652862-5 (Version None)
Quarter: 2010Q1

REPORT INFORMATION
  Report Type: 
  Country: None (occurrence: None)
  Receive Date: 20100326
  Receipt Date: 20100319
  Transmission Date: 20100710
  Serious: Yes (Hospitalization)
  Sender: FDA-Public Use
  Company Number: CH-NAPPMUNDI-GBR-2010-0006309

PATIENT
  Age: 35 Year
  Sex: Female

DRUGS (10)
  1. MORPHINE SULFATE [Suspect]
     Indication: PAIN
     Dosage: 2 MG, UNK
     Route: 065
  2. FENTANYL [Suspect]
     Indication: ANAESTHESIA PROCEDURE
     Dosage: 150 MCG, UNK
     Route: 065
  3. FENTANYL [Suspect]
     Indication: PAIN
     Dosage: 200 MCG, BOLUS
     Route: 065
  4. FENTANYL [Suspect]
     Indication: MAINTENANCE OF ANAESTHESIA
     Dosage: 3 X 25 MCG, UNK
     Route: 065
  5. ACETAMINOPHEN [Concomitant]
     Indication: PAIN
  6. PROPOFOL [Concomitant]
     Indication: ANAESTHESIA PROCEDURE
  7. LIDOCAINE [Concomitant]
     Indication: ANAESTHESIA PROCEDURE
  8. KETOROLAC TROMETHAMINE [Concomitant]
     Indication: PERIOPERATIVE ANALGESIA
  9. ROCURONIUM BROMIDE [Concomitant]
     Indication: ANAESTHESIA PROCEDURE
  10. SEVOFLURANE [Concomitant]
     Indication: ANAESTHESIA

REACTIONS (9)
  - BRADYKINESIA [None]
  - CORNEAL REFLEX DECREASED [None]
  - DYSPHONIA [None]
  - DYSTONIA [None]
  - EMOTIONAL DISTRESS [None]
  - FACIAL PARESIS [None]
  - MUSCLE RIGIDITY [None]
  - PARKINSONISM [None]
  - TACHYCARDIA [None]
